FAERS Safety Report 5224698-3 (Version None)
Quarter: 2007Q1

REPORT INFORMATION
  Report Type: 
  Country: None (occurrence: None)
  Receive Date: 20070129
  Receipt Date: 20070129
  Transmission Date: 20070707
  Serious: Yes (Disabling)
  Sender: FDA-Public Use
  Company Number: None

PATIENT
  Age: 31 Year
  Sex: Male

DRUGS (2)
  1. MAGNEVIST [Suspect]
     Indication: DIAGNOSTIC PROCEDURE
     Dosage: UNABLE TO OBTAIN   X1 IV
     Route: 042
     Dates: start: 20030429
  2. MAGNEVIST [Suspect]
     Indication: TRANSPLANT
     Dosage: UNABLE TO OBTAIN   X1 IV
     Route: 042
     Dates: start: 20030429

REACTIONS (1)
  - NEPHROGENIC FIBROSING DERMOPATHY [None]
